FAERS Safety Report 8650296 (Version 5)
Quarter: 2013Q1

REPORT INFORMATION
  Report Type: Report from Study
  Country: US (occurrence: US)
  Receive Date: 20120705
  Receipt Date: 20130207
  Transmission Date: 20140127
  Serious: Yes (Hospitalization)
  Sender: FDA-Public Use
  Company Number: US-ROCHE-1083671

PATIENT
  Age: 55 Year
  Sex: Male

DRUGS (7)
  1. RIBAVIRIN [Suspect]
     Indication: HEPATITIS C
     Route: 048
     Dates: start: 20110712, end: 20120516
  2. PEG-INTERFERON ALFA 2A [Suspect]
     Indication: HEPATITIS C
     Route: 058
     Dates: start: 20110712, end: 20120516
  3. BLINDED TMC435 [Suspect]
     Indication: HEPATITIS C
     Route: 065
     Dates: start: 20110712, end: 20111005
  4. ENALAPRIL [Concomitant]
     Route: 048
  5. ALEVE [Concomitant]
     Indication: PAIN
     Route: 065
  6. LOVENOX [Concomitant]
     Dosage: 0.3 ML
     Route: 058
     Dates: start: 20120615, end: 20120616
  7. PROTONIX [Concomitant]
     Route: 048
     Dates: start: 20120615

REACTIONS (3)
  - Renal failure acute [Recovered/Resolved]
  - Hypercalcaemia [Recovered/Resolved]
  - Sarcoidosis [Recovering/Resolving]
